FAERS Safety Report 20095712 (Version 1)
Quarter: 2021Q4

REPORT INFORMATION
  Report Type: Spontaneous
  Country: US (occurrence: US)
  Receive Date: 20211122
  Receipt Date: 20211122
  Transmission Date: 20220303
  Serious: Yes (Hospitalization, Other)
  Sender: FDA-Public Use
  Company Number: US-AVET LIFESCIENCES LTD-2021-AVET-000059

PATIENT
  Age: 69 Year
  Sex: Female

DRUGS (2)
  1. TEMOZOLOMIDE [Suspect]
     Active Substance: TEMOZOLOMIDE
     Indication: Pineocytoma
     Dosage: ADJUVANT 5-DAY TEMOZOLOMIDE WAS NOT INITIATED.
  2. TEMOZOLOMIDE [Suspect]
     Active Substance: TEMOZOLOMIDE
     Indication: Pineal parenchymal neoplasm malignant

REACTIONS (2)
  - Hyponatraemia [Unknown]
  - Fatigue [Unknown]
